FAERS Safety Report 5040759-6 (Version None)
Quarter: 2006Q2

REPORT INFORMATION
  Report Type: 
  Country: None (occurrence: None)
  Receive Date: 20060601
  Receipt Date: 20060306
  Transmission Date: 20061013
  Serious: No
  Sender: FDA-Public Use
  Company Number: 2006PV009722

PATIENT
  Age: 69 Year
  Sex: Female
  Weight: 93.8946 kg

DRUGS (4)
  1. BYETTA [Suspect]
     Indication: DIABETES MELLITUS NON-INSULIN-DEPENDENT
     Dosage: 5 MCG;BID;SC
     Route: 058
     Dates: start: 20060303
  2. METFORMIN/GLYBURIDE [Concomitant]
  3. ACTOS [Concomitant]
  4. ACTOPLUS MET [Concomitant]

REACTIONS (4)
  - BLOOD GLUCOSE INCREASED [None]
  - DRUG INEFFECTIVE [None]
  - HYPERTENSION [None]
  - INJECTION SITE BRUISING [None]
